FAERS Safety Report 24992174 (Version 2)
Quarter: 2025Q1

REPORT INFORMATION
  Report Type: Report from Study
  Country: CH (occurrence: CH)
  Receive Date: 20250220
  Receipt Date: 20250320
  Transmission Date: 20250408
  Serious: Yes (Hospitalization, Other)
  Sender: PFIZER
  Company Number: None

PATIENT
  Age: 18 Year
  Sex: Male
  Weight: 59 kg

DRUGS (26)
  1. DOXORUBICIN HYDROCHLORIDE [Suspect]
     Active Substance: DOXORUBICIN HYDROCHLORIDE
     Indication: Embryonal rhabdomyosarcoma
     Route: 042
     Dates: start: 20231127, end: 20231127
  2. DOXORUBICIN HYDROCHLORIDE [Suspect]
     Active Substance: DOXORUBICIN HYDROCHLORIDE
     Route: 042
     Dates: start: 20231128, end: 20231128
  3. DACTINOMYCIN [Suspect]
     Active Substance: DACTINOMYCIN
     Indication: Embryonal rhabdomyosarcoma
     Route: 042
     Dates: start: 20231127, end: 20231127
  4. MESNA [Suspect]
     Active Substance: MESNA
     Indication: Chemotherapy urothelial toxicity attenuation
     Route: 042
     Dates: start: 20231127, end: 20231127
  5. MESNA [Suspect]
     Active Substance: MESNA
     Dosage: 5200 MG, 1X/DAY
     Route: 042
     Dates: start: 20231128, end: 20231130
  6. IFOSFAMIDE [Suspect]
     Active Substance: IFOSFAMIDE
     Indication: Embryonal rhabdomyosarcoma
     Route: 042
     Dates: start: 20231127, end: 20231127
  7. IFOSFAMIDE [Suspect]
     Active Substance: IFOSFAMIDE
     Route: 042
     Dates: start: 20231128, end: 20231128
  8. ONCOVIN [Suspect]
     Active Substance: VINCRISTINE SULFATE
     Indication: Embryonal rhabdomyosarcoma
     Route: 042
     Dates: start: 20231127, end: 20231127
  9. ONCOVIN [Suspect]
     Active Substance: VINCRISTINE SULFATE
     Route: 042
     Dates: start: 20231204, end: 20231204
  10. ONCOVIN [Suspect]
     Active Substance: VINCRISTINE SULFATE
     Route: 042
     Dates: start: 20231211, end: 20231211
  11. METHYLPREDNISOLONE SODIUM SUCCINATE [Concomitant]
     Active Substance: METHYLPREDNISOLONE SODIUM SUCCINATE
     Route: 042
     Dates: start: 20231211
  12. FOSAPREPITANT DIMEGLUMINE [Concomitant]
     Active Substance: FOSAPREPITANT DIMEGLUMINE
     Indication: Prophylaxis of nausea and vomiting
     Route: 042
     Dates: start: 20231127, end: 20231127
  13. FOSAPREPITANT DIMEGLUMINE [Concomitant]
     Active Substance: FOSAPREPITANT DIMEGLUMINE
     Route: 042
     Dates: start: 20231128, end: 20231128
  14. SODIUM PICOSULFATE [Concomitant]
     Active Substance: SODIUM PICOSULFATE
     Route: 048
  15. EPIPEN [Concomitant]
     Active Substance: EPINEPHRINE
     Route: 058
     Dates: start: 20231127
  16. NOVALGIN (METAMIZOLE SODIUM) [Concomitant]
     Active Substance: METAMIZOLE SODIUM
     Indication: Pain
     Route: 048
  17. ZINC OXIDE [Concomitant]
     Active Substance: ZINC OXIDE
     Route: 061
  18. ZOFRAN [Concomitant]
     Active Substance: ONDANSETRON HYDROCHLORIDE
     Indication: Prophylaxis of nausea and vomiting
     Dosage: 8 MG, 3X/DAY, 1-1-1
     Route: 042
     Dates: start: 20231202
  19. CHOLECALCIFEROL [Concomitant]
     Active Substance: CHOLECALCIFEROL
     Dosage: 800 IU, 1X/DAY
     Route: 048
  20. DEXAMETHASONE [Concomitant]
     Active Substance: DEXAMETHASONE
     Dosage: 4 MG, 3X/DAY, 1-1-1
     Route: 042
     Dates: start: 20231127, end: 20231130
  21. CLEMASTINE FUMARATE [Concomitant]
     Active Substance: CLEMASTINE FUMARATE
     Route: 042
     Dates: start: 20231127
  22. DAFALGAN [Concomitant]
     Active Substance: ACETAMINOPHEN
     Indication: Pain
     Dosage: 500 MG, 4X/DAY, 1-1-1-1
     Route: 048
  23. DEXPANTHENOL [Concomitant]
     Active Substance: DEXPANTHENOL
     Dosage: 1 DF, 2X/DAY
     Route: 061
  24. BACTRIM [Concomitant]
     Active Substance: SULFAMETHOXAZOLE\TRIMETHOPRIM
     Indication: Scrotectomy
     Dosage: 1 DF, 3X/DAY, 1-0-1
     Route: 048
     Dates: start: 20231120
  25. LASIX [Concomitant]
     Active Substance: FUROSEMIDE
     Indication: Weight increased
     Route: 042
     Dates: start: 20231127
  26. GLYCERIN\MINERAL OIL\PETROLATUM [Concomitant]
     Active Substance: GLYCERIN\MINERAL OIL\PETROLATUM
     Dosage: 1 DF, 3X/DAY
     Route: 061

REACTIONS (3)
  - Febrile neutropenia [Recovered/Resolved]
  - Back pain [Unknown]
  - Headache [Unknown]

NARRATIVE: CASE EVENT DATE: 20231211
